FAERS Safety Report 16507678 (Version 1)
Quarter: 2019Q3

REPORT INFORMATION
  Report Type: Spontaneous
  Country: US (occurrence: US)
  Receive Date: 20190521
  Receipt Date: 20190521
  Transmission Date: 20191004
  Serious: No
  Sender: FDA-Public Use
  Company Number: None

PATIENT
  Sex: Male

DRUGS (2)
  1. MIRTAZAPINE. [Suspect]
     Active Substance: MIRTAZAPINE
  2. METHYLPHENIDATE. [Suspect]
     Active Substance: METHYLPHENIDATE

REACTIONS (7)
  - Breast tenderness [None]
  - Contraindicated product prescribed [None]
  - Glaucoma [None]
  - Erythema [None]
  - Swelling [None]
  - Breast mass [None]
  - Gynaecomastia [None]
